FAERS Safety Report 18347305 (Version 4)
Quarter: 2021Q2

REPORT INFORMATION
  Report Type: Report from Study
  Country: CN (occurrence: CN)
  Receive Date: 20201005
  Receipt Date: 20210511
  Transmission Date: 20210717
  Serious: Yes (Hospitalization)
  Sender: FDA-Public Use
  Company Number: CN-ROCHE-2686192

PATIENT
  Age: 74 Year
  Sex: Male
  Weight: 74 kg

DRUGS (30)
  1. DOXORUBICIN [Suspect]
     Active Substance: DOXORUBICIN
     Indication: DIFFUSE LARGE B-CELL LYMPHOMA
     Dosage: DATE OF MOST RECENT DOSE 96 MG OF DOXORUBICIN ADMINISTERED PRIOR TO SAE ONSET ON 14/AUG/2020.
     Route: 042
     Dates: start: 20200814
  2. OMEPRAZOLE SODIUM [Concomitant]
     Active Substance: OMEPRAZOLE SODIUM
     Route: 042
     Dates: start: 20200810, end: 20200818
  3. BUDESONIDE. [Concomitant]
     Active Substance: BUDESONIDE
     Route: 042
     Dates: start: 20200821, end: 20200825
  4. MECAPEGFILGRASTIM [Concomitant]
     Active Substance: MECAPEGFILGRASTIM
     Route: 055
     Dates: start: 20200817, end: 20200817
  5. DIPHENHYDRAMINE HYDROCHLORIDE. [Concomitant]
     Active Substance: DIPHENHYDRAMINE HYDROCHLORIDE
     Route: 037
     Dates: start: 20200813, end: 20200813
  6. ESTAZOLAM. [Concomitant]
     Active Substance: ESTAZOLAM
     Route: 048
     Dates: start: 20200819, end: 20200826
  7. METHYLPREDNISOLONE SODIUM SUCCINATE. [Concomitant]
     Active Substance: METHYLPREDNISOLONE SODIUM SUCCINATE
     Indication: ANTIALLERGIC THERAPY
     Route: 042
     Dates: start: 20200813, end: 20200813
  8. PREDNISONE. [Suspect]
     Active Substance: PREDNISONE
     Indication: DIFFUSE LARGE B-CELL LYMPHOMA
     Dosage: FREQUENCY: ON DAYS 1?5 OF EVERY 21?DAY CYCLE FOR 6 CYCLES.?DATE OF MOST RECENT DOSE OF PREDNISONE AD
     Route: 048
     Dates: start: 20200813
  9. PREDNISONE ACETATE [Concomitant]
     Active Substance: PREDNISONE ACETATE
     Route: 048
     Dates: start: 20200810, end: 20200812
  10. COMPOUND DIISOPROPYLAMINE DICHLOROACETATE [Concomitant]
     Active Substance: DIISOPROPYLAMMONIUM DICHLOROACETATE
     Route: 042
     Dates: start: 20200810, end: 20200818
  11. DIPHENHYDRAMINE HYDROCHLORIDE. [Concomitant]
     Active Substance: DIPHENHYDRAMINE HYDROCHLORIDE
     Indication: ANTIALLERGIC THERAPY
     Route: 030
     Dates: start: 20200819, end: 20200826
  12. FUROSEMIDE. [Concomitant]
     Active Substance: FUROSEMIDE
     Route: 042
     Dates: start: 20200815, end: 20200816
  13. CYCLOPHOSPHAMIDE. [Suspect]
     Active Substance: CYCLOPHOSPHAMIDE
     Indication: DIFFUSE LARGE B-CELL LYMPHOMA
     Dosage: DATE OF MOST RECENT DOSE 1440 MG OF CYCLOPHOSPHAMIDE ADMINISTERED PRIOR TO SAE ONSET ON 14/AUG/2020
     Route: 042
     Dates: start: 20200814
  14. PALONOSETRON HYDROCHLORIDE. [Concomitant]
     Active Substance: PALONOSETRON HYDROCHLORIDE
     Route: 042
     Dates: start: 20200814, end: 20200817
  15. NIFEDIPINE. [Concomitant]
     Active Substance: NIFEDIPINE
     Indication: HYPOTENSION
     Route: 060
     Dates: start: 20200813, end: 20200814
  16. PLACEBO [Suspect]
     Active Substance: UNSPECIFIED INGREDIENT
     Indication: DIFFUSE LARGE B-CELL LYMPHOMA
     Dosage: DATE OF MOST RECENT DOSE OF PLACEBO PRIOR TO SAE ONSET ON 14/AUG/2020.
     Route: 042
     Dates: start: 20200814
  17. MULTIPLE ELECTROLYTES [Concomitant]
     Route: 042
     Dates: start: 20200810, end: 20200818
  18. COMPOUND DIGESTIVE ENZYME CAPSULES [Concomitant]
     Route: 048
     Dates: start: 20200816, end: 20200826
  19. AMBROXOL HYDROCHLORIDE [Concomitant]
     Active Substance: AMBROXOL HYDROCHLORIDE
     Route: 042
     Dates: start: 20200821, end: 20200826
  20. CALCIUM CARBONATE;VITAMIN D3 [Concomitant]
     Route: 048
     Dates: start: 20200810, end: 20200826
  21. POTASSIUM ASPARTATE AND MAGNESIUM ASPARTATE [Concomitant]
     Route: 042
     Dates: start: 20200810, end: 20200818
  22. LACTULOSE. [Concomitant]
     Active Substance: LACTULOSE
     Route: 048
     Dates: start: 20200817, end: 20200820
  23. POLATUZUMAB VEDOTIN. [Suspect]
     Active Substance: POLATUZUMAB VEDOTIN
     Indication: DIFFUSE LARGE B-CELL LYMPHOMA
     Dosage: DATE OF MOST RECENT DOSE 133 MG OF POLATUZUMAB VEDOTIN PRIOR TO SAE ONSET ON 14/AUG/2020.
     Route: 042
     Dates: start: 20200814
  24. RITUXIMAB. [Suspect]
     Active Substance: RITUXIMAB
     Indication: DIFFUSE LARGE B-CELL LYMPHOMA
     Dosage: DATE OF MOST RECENT DOSE 720 MG OF RITUXIMAB ADMINISTERED PRIOR TO SAE ONSET ON 13/AUG/2020
     Route: 041
     Dates: start: 20200813
  25. SODIUM BICARBONATE. [Concomitant]
     Active Substance: SODIUM BICARBONATE
     Route: 042
     Dates: start: 20200810, end: 20200818
  26. DOMPERIDONE [Concomitant]
     Active Substance: DOMPERIDONE
     Route: 048
     Dates: start: 20200816, end: 20200826
  27. DEXAMETHASONE SODIUM PHOSPHATE. [Concomitant]
     Active Substance: DEXAMETHASONE SODIUM PHOSPHATE
     Indication: ANTIALLERGIC THERAPY
     Route: 042
     Dates: start: 20200813, end: 20200813
  28. DEXRAZOXANE. [Concomitant]
     Active Substance: DEXRAZOXANE
     Route: 042
     Dates: start: 20200814, end: 20200814
  29. PIPERACILLIN AND TAZOBACTAM [Concomitant]
     Active Substance: PIPERACILLIN SODIUM\TAZOBACTAM SODIUM
     Route: 042
     Dates: start: 20200811, end: 20200826
  30. MESNA. [Concomitant]
     Active Substance: MESNA
     Route: 042
     Dates: start: 20200814, end: 20200814

REACTIONS (1)
  - Myelosuppression [Recovered/Resolved]

NARRATIVE: CASE EVENT DATE: 20200820
